FAERS Safety Report 21927900 (Version 2)
Quarter: 2023Q1

REPORT INFORMATION
  Report Type: Spontaneous
  Country: ES (occurrence: ES)
  Receive Date: 20230130
  Receipt Date: 20230206
  Transmission Date: 20230418
  Serious: Yes (Other)
  Sender: FDA-Public Use
  Company Number: ES-BAYER-2023P001238

PATIENT
  Age: 66 Year
  Sex: Male

DRUGS (1)
  1. SORAFENIB [Suspect]
     Active Substance: SORAFENIB
     Indication: Hepatocellular carcinoma
     Dosage: 200 MG, BID

REACTIONS (14)
  - Skin disorder [None]
  - Erythema [None]
  - Dermatitis bullous [None]
  - Palmar-plantar erythrodysaesthesia syndrome [None]
  - Cutaneous vasculitis [None]
  - Cutaneous vasculitis [None]
  - Hepatic cirrhosis [None]
  - Chronic hepatitis B [None]
  - Portal hypertension [None]
  - Necrosis [None]
  - Off label use [None]
  - Asthenia [None]
  - Erythema [None]
  - Blister [None]
